FAERS Safety Report 7909267-6 (Version None)
Quarter: 2011Q4

REPORT INFORMATION
  Report Type: 
  Country: None (occurrence: None)
  Receive Date: 20111111
  Receipt Date: 20111031
  Transmission Date: 20120403
  Serious: Yes (Hospitalization, Other)
  Sender: FDA-Public Use
  Company Number: US-BAYER-2011-052323

PATIENT
  Age: 29 Year
  Sex: Female
  Weight: 68.481 kg

DRUGS (31)
  1. DROSPIRENONE AND ETHINYL ESTRADIOL [Suspect]
     Indication: CONTRACEPTION
     Dosage: UNK
     Dates: start: 20020101, end: 20080801
  2. PROMETHAZINE [Concomitant]
     Indication: VOMITING
  3. HYDROCODONE BITARTRATE + IBUPROFEN [Concomitant]
     Dosage: UNK
     Route: 048
     Dates: start: 20090608
  4. DROSPIRENONE AND ETHINYL ESTRADIOL [Suspect]
     Dosage: UNK
     Dates: start: 20081001, end: 20090901
  5. HYDROCODONE BITARTRATE AND ACETAMINOPHEN [Concomitant]
     Indication: PAIN
     Dosage: UNK UNK, PRN
     Route: 048
     Dates: start: 20080703
  6. CHLORDIAZEPOXIDE W/CLIDINIUM [Concomitant]
     Indication: ABDOMINAL DISCOMFORT
     Dosage: UNK UNK, QID
     Route: 048
     Dates: start: 20090728
  7. DICYCLOMINE [Concomitant]
     Indication: ABDOMINAL PAIN
     Dosage: 20 MG, QID
     Route: 048
     Dates: start: 20090728
  8. DOXYCYCLINE [Concomitant]
     Dosage: 100 MG, BID
     Route: 048
     Dates: start: 20090519
  9. POTASSIUM CHLORIDE [Concomitant]
     Dosage: 20 MEQ, UNK
     Route: 048
     Dates: start: 20090728
  10. CHLORDIAZEPOXIDE W/CLIDINIUM [Concomitant]
     Indication: MUSCLE SPASMS
  11. ZOFRAN [Concomitant]
     Dosage: 8 MG, UNK
     Route: 042
     Dates: start: 20090728
  12. MULTI-VITAMIN [Concomitant]
     Dosage: UNK
     Dates: start: 20090806
  13. PROMETHAZINE [Concomitant]
     Indication: NAUSEA
     Dosage: UNK
     Dates: start: 20080703
  14. MIRALAX [Concomitant]
     Dosage: 17 G, PRN
     Route: 048
     Dates: start: 20080703
  15. AMOXICILLIN [Concomitant]
     Dosage: 875 MG, BID
     Route: 048
     Dates: start: 20090415
  16. METHOTREXATE [Concomitant]
     Dosage: 2.5 MG, UNK
     Dates: start: 20090423
  17. TESTOSTERONE [Concomitant]
     Indication: SEXUAL DYSFUNCTION
     Dosage: UNK
     Route: 061
     Dates: start: 20090604
  18. LEVSIN [Concomitant]
     Indication: ABDOMINAL RIGIDITY
     Dosage: UNK UNK, PRN
     Route: 060
     Dates: start: 20090730
  19. SERTRALINE HYDROCHLORIDE [Concomitant]
     Indication: ANXIETY
     Dosage: UNK UNK, QD
     Route: 048
     Dates: start: 20080703
  20. HUMIRA [Concomitant]
     Indication: PSORIASIS
     Dosage: UNK
     Dates: start: 20090101, end: 20090601
  21. GENTAMICIN SULFATE [Concomitant]
     Dosage: 0.1 %, UNK
     Route: 061
     Dates: start: 20090415
  22. LEVAQUIN [Concomitant]
     Dosage: 500 MG, QD
     Route: 048
     Dates: start: 20090514
  23. ATIVAN [Concomitant]
     Dosage: 1 MG, UNK
     Route: 042
     Dates: start: 20090728
  24. DEMEROL [Concomitant]
     Dosage: 100 MG, UNK
     Route: 030
     Dates: start: 20090728
  25. PROVIGIL [Concomitant]
     Dosage: 200 MG, QD
     Route: 048
     Dates: start: 20090809
  26. PERCOCET [Concomitant]
     Indication: PAIN
     Dosage: UNK UNK, PRN
     Route: 048
     Dates: start: 20090809
  27. MORPHINE [Concomitant]
  28. XANAX [Concomitant]
  29. COLACE [Concomitant]
     Dosage: 100 MG, BID
     Route: 048
     Dates: start: 20080703
  30. BACTROBAN [Concomitant]
     Dosage: 2 %, QD
     Route: 061
     Dates: start: 20080905
  31. BISMUTH SUBSALICYLATE [Concomitant]
     Dosage: UNK
     Dates: start: 20050727

REACTIONS (8)
  - PULMONARY EMBOLISM [None]
  - ANXIETY [None]
  - PAIN [None]
  - INJURY [None]
  - GALLBLADDER DISORDER [None]
  - CHOLECYSTITIS CHRONIC [None]
  - EMOTIONAL DISORDER [None]
  - PSYCHOLOGICAL TRAUMA [None]
